FAERS Safety Report 23084781 (Version 3)
Quarter: 2023Q4

REPORT INFORMATION
  Report Type: Spontaneous
  Country: ZA (occurrence: ZA)
  Receive Date: 20231019
  Receipt Date: 20231025
  Transmission Date: 20240110
  Serious: Yes (Other)
  Sender: FDA-Public Use
  Company Number: ZA-PFIZER INC-PV202300171014

PATIENT
  Age: 58 Year
  Sex: Male
  Weight: 102 kg

DRUGS (3)
  1. METHOTREXATE SODIUM [Suspect]
     Active Substance: METHOTREXATE SODIUM
     Dosage: 15 MG, WEEKLY
     Route: 048
     Dates: start: 202306
  2. PREDNISONE [Suspect]
     Active Substance: PREDNISONE
     Dosage: 7.5 MG, DAILY
     Route: 048
  3. CHLOROQUINE SULFATE [Suspect]
     Active Substance: CHLOROQUINE SULFATE
     Dosage: 200 MG FROM MONDAY TO FRIDAY
     Dates: start: 202303, end: 202306

REACTIONS (4)
  - Condition aggravated [Unknown]
  - Haemoglobin decreased [Unknown]
  - Treatment failure [Unknown]
  - White blood cell count increased [Unknown]

NARRATIVE: CASE EVENT DATE: 20230913
